FAERS Safety Report 4976778-5 (Version None)
Quarter: 2006Q2

REPORT INFORMATION
  Report Type: 
  Country: None (occurrence: None)
  Receive Date: 20060419
  Receipt Date: 20060414
  Transmission Date: 20061013
  Serious: Yes (Other)
  Sender: FDA-Public Use
  Company Number: FR-GLAXOSMITHKLINE-B0420327A

PATIENT
  Age: 83 Year
  Sex: Female

DRUGS (2)
  1. VALACYCLOVIR HCL [Suspect]
     Indication: HERPES ZOSTER
     Dosage: 1G PER DAY
     Route: 048
     Dates: start: 20060413, end: 20060413
  2. UNSPECIFIED TREATMENT [Concomitant]

REACTIONS (2)
  - DELIRIUM [None]
  - PSYCHOMOTOR RETARDATION [None]
